FAERS Safety Report 8002953-1 (Version None)
Quarter: 2011Q4

REPORT INFORMATION
  Report Type: 
  Country: None (occurrence: None)
  Receive Date: 20111222
  Receipt Date: 20110505
  Transmission Date: 20120403
  Serious: No
  Sender: FDA-Public Use
  Company Number: US-GLAXOSMITHKLINE-A0926156A

PATIENT
  Age: 78 Year
  Sex: Male

DRUGS (1)
  1. AVODART [Suspect]
     Indication: POLLAKIURIA
     Dosage: 1CAP PER DAY
     Route: 048
     Dates: start: 20111101

REACTIONS (4)
  - FAECAL INCONTINENCE [None]
  - INSOMNIA [None]
  - DISSOCIATION [None]
  - ANXIETY [None]
